FAERS Safety Report 5117891-1 (Version None)
Quarter: 2006Q3

REPORT INFORMATION
  Report Type: 
  Country: None (occurrence: None)
  Receive Date: 20060926
  Receipt Date: 20060906
  Transmission Date: 20061208
  Serious: Yes (Other)
  Sender: FDA-Public Use
  Company Number: 2006SP000699

PATIENT
  Sex: Male

DRUGS (6)
  1. INTERFERON                ( INTERFERON ALFA-2B ) [Suspect]
     Indication: HEPATITIS C
     Dosage: SEE IMAGE
     Dates: start: 19910901, end: 19920301
  2. INTERFERON                ( INTERFERON ALFA-2B ) [Suspect]
     Indication: HEPATITIS C
     Dosage: SEE IMAGE
     Dates: start: 19930701, end: 19941201
  3. INTERFERON                ( INTERFERON ALFA-2B ) [Suspect]
     Indication: HEPATITIS C
     Dosage: SEE IMAGE
     Dates: start: 19980401, end: 19990301
  4. INTERFERON                ( INTERFERON ALFA-2B ) [Suspect]
     Indication: HEPATITIS C
     Dosage: SEE IMAGE
     Dates: start: 20050201, end: 20060201
  5. RIBAVIRIN (S-P) (RIBAVIRIN) [Suspect]
     Indication: HEPATITIS C
     Dosage: SEE IMAGE
     Dates: start: 19980401, end: 19990301
  6. RIBAVIRIN (S-P) (RIBAVIRIN) [Suspect]
     Indication: HEPATITIS C
     Dosage: SEE IMAGE
     Dates: start: 20050201, end: 20060201

REACTIONS (2)
  - CROHN'S DISEASE [None]
  - DEPRESSION [None]
